FAERS Safety Report 21512014 (Version 3)
Quarter: 2024Q2

REPORT INFORMATION
  Report Type: Spontaneous
  Country: US (occurrence: US)
  Receive Date: 20221027
  Receipt Date: 20240401
  Transmission Date: 20240715
  Serious: No
  Sender: FDA-Public Use
  Company Number: US-SA-SAC20221019000462

PATIENT
  Age: 62 Year
  Sex: Male

DRUGS (1)
  1. DUPIXENT [Suspect]
     Active Substance: DUPILUMAB
     Indication: Dermatitis atopic
     Dosage: 300 MG, QOW
     Route: 058
     Dates: start: 20190724

REACTIONS (5)
  - Hyperhidrosis [Unknown]
  - Skin swelling [Unknown]
  - Pruritus [Unknown]
  - Dermatitis atopic [Unknown]
  - Pruritus [Unknown]
